FAERS Safety Report 23482104 (Version 1)
Quarter: 2024Q1

REPORT INFORMATION
  Report Type: Spontaneous
  Country: US (occurrence: None)
  Receive Date: 20240203
  Receipt Date: 20240203
  Transmission Date: 20240409
  Serious: Yes (Disabling)
  Sender: FDA-Public Use
  Company Number: None

PATIENT
  Age: 47 Year
  Sex: Female
  Weight: 65.7 kg

DRUGS (3)
  1. ZEPBOUND [Suspect]
     Active Substance: TIRZEPATIDE
     Dosage: OTHER QUANTITY : 2.5 INJECTION(S);?
     Dates: start: 20240131
  2. LEXAPRO [Concomitant]
     Active Substance: ESCITALOPRAM OXALATE
  3. ATIVAN [Concomitant]
     Active Substance: LORAZEPAM

REACTIONS (2)
  - Insomnia [None]
  - Therapeutic product effect decreased [None]

NARRATIVE: CASE EVENT DATE: 20240202
